FAERS Safety Report 6069268-2 (Version None)
Quarter: 2009Q1

REPORT INFORMATION
  Report Type: 
  Country: None (occurrence: None)
  Receive Date: 20090206
  Receipt Date: 20090126
  Transmission Date: 20090719
  Serious: Yes (Hospitalization)
  Sender: FDA-Public Use
  Company Number: IT-ROCHE-610643

PATIENT
  Sex: Male

DRUGS (2)
  1. PEG-INTERFERON ALFA 2A (RO 25-8310) [Suspect]
     Route: 065
     Dates: start: 20071219, end: 20080920
  2. RIBAVIRIN [Suspect]
     Route: 065
     Dates: start: 20071219, end: 20080920

REACTIONS (1)
  - LYMPHADENOPATHY [None]
